FAERS Safety Report 6142042-4 (Version None)
Quarter: 2009Q1

REPORT INFORMATION
  Report Type: 
  Country: None (occurrence: None)
  Receive Date: 20090331
  Receipt Date: 20090331
  Transmission Date: 20090719
  Serious: Yes (Other)
  Sender: FDA-Public Use
  Company Number: None

PATIENT
  Sex: Female
  Weight: 136.0791 kg

DRUGS (1)
  1. MIRTAZAPINE [Suspect]
     Indication: INSOMNIA
     Dosage: 30 MGM 1 @ HS PO
     Route: 048
     Dates: start: 20080808, end: 20090131

REACTIONS (5)
  - BLOOD GLUCOSE INCREASED [None]
  - DIABETES MELLITUS [None]
  - FEELING ABNORMAL [None]
  - INCREASED APPETITE [None]
  - WEIGHT INCREASED [None]
